FAERS Safety Report 7751503-3 (Version None)
Quarter: 2011Q3

REPORT INFORMATION
  Report Type: 
  Country: None (occurrence: None)
  Receive Date: 20110914
  Receipt Date: 20110831
  Transmission Date: 20111222
  Serious: Yes (Other)
  Sender: FDA-Public Use
  Company Number: PHHY2011BR78448

PATIENT
  Sex: Male

DRUGS (4)
  1. EXFORGE [Suspect]
     Dosage: 1 DF (160/5 MG), DAILY
  2. RASILEZ [Suspect]
     Dosage: 300 MG, UNK
  3. INDAPEN [Concomitant]
     Dosage: 1.5 MG, UNK
  4. NEBIVOLOL HCL [Concomitant]
     Dosage: 5 MG, UNK

REACTIONS (3)
  - CARDIAC VALVE DISEASE [None]
  - PROSTATE CANCER [None]
  - DRUG INEFFECTIVE [None]
